FAERS Safety Report 4684891-5 (Version None)
Quarter: 2005Q2

REPORT INFORMATION
  Report Type: 
  Country: None (occurrence: None)
  Receive Date: 20050525
  Receipt Date: 20050411
  Transmission Date: 20051028
  Serious: No
  Sender: FDA-Public Use
  Company Number: 213717

PATIENT
  Age: 24 Year
  Sex: Female

DRUGS (1)
  1. RAPTIVA [Suspect]
     Indication: PSORIASIS
     Dosage: 31 MG, SUBCUTANEOUS
     Route: 058
     Dates: start: 20050407, end: 20050407

REACTIONS (1)
  - HEADACHE [None]
